FAERS Safety Report 7105188-X (Version None)
Quarter: 2010Q4

REPORT INFORMATION
  Report Type: 
  Country: None (occurrence: None)
  Receive Date: 20101116
  Receipt Date: 20101108
  Transmission Date: 20110411
  Serious: Yes (Hospitalization, Other)
  Sender: FDA-Public Use
  Company Number: GB-JNJFOC-20101104060

PATIENT

DRUGS (2)
  1. IMODIUM [Suspect]
     Indication: ILL-DEFINED DISORDER
     Route: 048
  2. IMODIUM [Suspect]
     Route: 048

REACTIONS (2)
  - HOSPITALISATION [None]
  - OVERDOSE [None]
